FAERS Safety Report 23521195 (Version 1)
Quarter: 2024Q1

REPORT INFORMATION
  Report Type: Report from Study
  Country: US (occurrence: US)
  Receive Date: 20240214
  Receipt Date: 20240214
  Transmission Date: 20240409
  Serious: Yes (Other)
  Sender: FDA-Public Use
  Company Number: US-ABBVIE-5487127

PATIENT
  Sex: Female
  Weight: 56.699 kg

DRUGS (5)
  1. BOTOX [Suspect]
     Active Substance: ONABOTULINUMTOXINA
     Indication: Migraine
     Dosage: TIME INTERVAL: AS NECESSARY: BETWEEN 150 TO 200 UNITS?FREQUENCY WAS ONCE EVERY THREE MONTHS
     Route: 030
  2. BOTOX [Suspect]
     Active Substance: ONABOTULINUMTOXINA
     Indication: Migraine
     Dosage: TIME INTERVAL: AS NECESSARY: FREQUENCY WAS ONCE EVERY THREE MONTHS
     Route: 065
     Dates: start: 2008, end: 2008
  3. ROBAXIN [Concomitant]
     Active Substance: METHOCARBAMOL
     Indication: Muscle relaxant therapy
  4. GABAPENTIN [Concomitant]
     Active Substance: GABAPENTIN
     Indication: Pain
  5. VITAMIN B12 [Concomitant]
     Active Substance: CYANOCOBALAMIN
     Indication: Supplementation therapy

REACTIONS (12)
  - Head injury [Recovered/Resolved]
  - Fall [Recovered/Resolved]
  - Generalised tonic-clonic seizure [Recovering/Resolving]
  - Concussion [Recovered/Resolved]
  - Petit mal epilepsy [Recovered/Resolved]
  - Speech disorder [Recovered/Resolved]
  - Red blood cell count decreased [Unknown]
  - Diplopia [Recovering/Resolving]
  - Loss of consciousness [Recovered/Resolved]
  - Road traffic accident [Recovered/Resolved]
  - Memory impairment [Not Recovered/Not Resolved]
  - Head injury [Recovered/Resolved]

NARRATIVE: CASE EVENT DATE: 20080101
